FAERS Safety Report 5317717-7 (Version None)
Quarter: 2007Q2

REPORT INFORMATION
  Report Type: 
  Country: None (occurrence: None)
  Receive Date: 20070507
  Receipt Date: 20070426
  Transmission Date: 20071010
  Serious: Yes (Hospitalization)
  Sender: FDA-Public Use
  Company Number: AU-AMGEN-US184257

PATIENT
  Sex: Male

DRUGS (15)
  1. CINACALCET [Suspect]
     Indication: HYPERPARATHYROIDISM SECONDARY
     Route: 048
     Dates: start: 20051209, end: 20060609
  2. LIPITOR [Suspect]
  3. ALLOPURINOL [Suspect]
  4. GEMFIBROZIL [Concomitant]
     Route: 065
     Dates: start: 20031121
  5. ARANESP [Concomitant]
     Indication: RENAL FAILURE CHRONIC
     Route: 065
     Dates: start: 20060312
  6. ASPIRIN [Concomitant]
     Route: 065
     Dates: start: 19910101
  7. IRBESARTAN [Concomitant]
     Route: 065
     Dates: start: 20040604
  8. FORMOTEROL FUMARATE [Concomitant]
     Route: 065
     Dates: start: 20051010, end: 20060518
  9. WARFARIN SODIUM [Concomitant]
     Route: 065
     Dates: start: 20060131, end: 20060426
  10. MONOPRIL [Concomitant]
     Route: 065
     Dates: start: 20020101
  11. ACTOS [Concomitant]
     Route: 065
     Dates: start: 20040609
  12. LERCANIDIPINE HYDROCHLORIDE [Concomitant]
     Route: 065
     Dates: start: 20030923
  13. FUROSEMIDE [Concomitant]
     Route: 065
     Dates: start: 20051121
  14. ISOSORBIDE [Concomitant]
     Route: 065
     Dates: start: 20020101
  15. VALPROATE SODIUM [Concomitant]
     Route: 065
     Dates: start: 20050221

REACTIONS (3)
  - CHOLESTASIS [None]
  - GASTROENTERITIS [None]
  - RENAL FAILURE ACUTE [None]
